FAERS Safety Report 4690155-6 (Version None)
Quarter: 2005Q2

REPORT INFORMATION
  Report Type: 
  Country: None (occurrence: None)
  Receive Date: 20050613
  Receipt Date: 20050603
  Transmission Date: 20051028
  Serious: Yes (Hospitalization)
  Sender: FDA-Public Use
  Company Number: 2005JP001111

PATIENT
  Age: 51 Year
  Sex: Female

DRUGS (8)
  1. PROGRAF [Suspect]
     Indication: BONE MARROW TRANSPLANT
  2. THIOTEPA [Concomitant]
  3. METHOTREXATE [Concomitant]
  4. ACYCLOVIR [Concomitant]
  5. POLYVALENT IMMUNOGLOBULIN [Concomitant]
  6. FLUDARABINE PHOSPHATE [Concomitant]
  7. LYMPHOGLOBULINE (ANTITHMOCYTE IMUNOGLOBULIN) [Concomitant]
  8. PREDNISONE [Concomitant]

REACTIONS (12)
  - BONE MARROW DEPRESSION [None]
  - COMA [None]
  - CONVULSION [None]
  - ENCEPHALITIS HERPES [None]
  - GRAFT COMPLICATION [None]
  - GRAFT VERSUS HOST DISEASE [None]
  - HAEMORRHAGIC DIATHESIS [None]
  - NEPHROPATHY TOXIC [None]
  - SEPSIS [None]
  - STEM CELL TRANSPLANT [None]
  - THROMBOCYTOPENIA [None]
  - TRANSPLANT REJECTION [None]
